FAERS Safety Report 20169039 (Version 3)
Quarter: 2022Q1

REPORT INFORMATION
  Report Type: Report from Study
  Country: DE (occurrence: DE)
  Receive Date: 20211210
  Receipt Date: 20220120
  Transmission Date: 20220423
  Serious: No
  Sender: FDA-Public Use
  Company Number: DE-LEO Pharma-340072

PATIENT
  Age: 57 Year
  Sex: Male

DRUGS (2)
  1. BRODALUMAB [Suspect]
     Active Substance: BRODALUMAB
     Indication: Psoriasis
     Dosage: AS PER SMPC (SUMMARY OF PRODUCT CHARACTERISTICS) (210 MG)
     Route: 058
     Dates: start: 20210809
  2. BRODALUMAB [Suspect]
     Active Substance: BRODALUMAB
     Indication: Psoriatic arthropathy

REACTIONS (2)
  - Leukopenia [Recovered/Resolved]
  - Basophil count increased [Recovered/Resolved]

NARRATIVE: CASE EVENT DATE: 20211102
